FAERS Safety Report 12213430 (Version 1)
Quarter: 2016Q1

REPORT INFORMATION
  Report Type: Spontaneous
  Country: US (occurrence: None)
  Receive Date: 20160325
  Receipt Date: 20160325
  Transmission Date: 20160526
  Serious: No
  Sender: FDA-Public Use
  Company Number: None

PATIENT
  Sex: Male

DRUGS (24)
  1. IRON [Concomitant]
     Active Substance: IRON
  2. TRIAMCINOLONE [Concomitant]
     Active Substance: TRIAMCINOLONE
  3. ENBREL [Suspect]
     Active Substance: ETANERCEPT
     Indication: RHEUMATOID ARTHRITIS
     Route: 058
     Dates: start: 20080222
  4. GABAPENTIN. [Concomitant]
     Active Substance: GABAPENTIN
  5. SULFASALAZINE. [Concomitant]
     Active Substance: SULFASALAZINE
  6. OFLAXACIN [Concomitant]
     Active Substance: OFLOXACIN
  7. SMZ-TMP [Concomitant]
     Active Substance: SULFAMETHOXAZOLE\TRIMETHOPRIM
  8. AMOX/K CLAV [Concomitant]
     Active Substance: AMOXICILLIN\CLAVULANATE POTASSIUM
  9. CEPHALEXIN. [Concomitant]
     Active Substance: CEPHALEXIN
  10. LEVAQUIN [Concomitant]
     Active Substance: LEVOFLOXACIN
  11. HYD POL/CPM [Concomitant]
  12. HC VALERATE [Concomitant]
  13. CEFDINIR. [Concomitant]
     Active Substance: CEFDINIR
  14. FOLIC ACID. [Concomitant]
     Active Substance: FOLIC ACID
  15. ILEVRO [Concomitant]
     Active Substance: NEPAFENAC
  16. PLAQUENIL [Concomitant]
     Active Substance: HYDROXYCHLOROQUINE SULFATE
  17. DIOVAN [Concomitant]
     Active Substance: VALSARTAN
  18. PREDNISONE. [Concomitant]
     Active Substance: PREDNISONE
  19. CLINDAMYCIN [Concomitant]
     Active Substance: CLINDAMYCIN\CLINDAMYCIN PHOSPHATE
  20. DUREZOL [Concomitant]
     Active Substance: DIFLUPREDNATE
  21. CIALIS [Concomitant]
     Active Substance: TADALAFIL
  22. DULERA [Concomitant]
     Active Substance: FORMOTEROL FUMARATE DIHYDRATE\MOMETASONE FUROATE
  23. HYDROCO/APAP [Concomitant]
     Active Substance: ACETAMINOPHEN\HYDROCODONE
  24. VOLTAREN [Concomitant]
     Active Substance: DICLOFENAC SODIUM

REACTIONS (2)
  - Sinusitis [None]
  - Therapy cessation [None]

NARRATIVE: CASE EVENT DATE: 2016
